FAERS Safety Report 14457355 (Version 1)
Quarter: 2018Q1

REPORT INFORMATION
  Report Type: Spontaneous
  Country: FR (occurrence: FR)
  Receive Date: 20180130
  Receipt Date: 20180130
  Transmission Date: 20180509
  Serious: Yes (Hospitalization)
  Sender: FDA-Public Use
  Company Number: FR-TEVA-2018-FR-850023

PATIENT
  Age: 84 Year
  Sex: Male
  Weight: 93 kg

DRUGS (21)
  1. SYMBICORT TURBUHALER 400/12 MICROGRAMMES/DOSE [Concomitant]
  2. SEROPLEX [Concomitant]
     Active Substance: ESCITALOPRAM OXALATE
  3. AMLODIPINE [Concomitant]
     Active Substance: AMLODIPINE BESYLATE
  4. TRAMADOL CHLORHYDRATE [Suspect]
     Active Substance: TRAMADOL HYDROCHLORIDE
     Indication: PRODUCT USED FOR UNKNOWN INDICATION
     Route: 048
     Dates: start: 20170522
  5. IPRATROPIUM BROMIDE\FENOTEROL HYDROBROMIDE [Concomitant]
     Active Substance: FENOTEROL HYDROBROMIDE\IPRATROPIUM BROMIDE
  6. LEVOTHYROX 75 MICROGRAMMES, COMPRIME SECABLE [Concomitant]
  7. DIFFU K [Concomitant]
     Active Substance: POTASSIUM CHLORIDE
  8. IMOVANE 7,5 MG, COMPRIME PELLICULE SECABLE [Concomitant]
  9. CORDARONE 200 MG, COMPRIME SECABLE [Concomitant]
  10. ENALAPRIL MALEATE. [Concomitant]
     Active Substance: ENALAPRIL MALEATE
  11. PREVISCAN (FLUINDIONE) [Concomitant]
     Active Substance: FLUINDIONE
  12. MONTELUKAST ACIDE [Concomitant]
  13. IPRATROPIUM BROMIDE. [Concomitant]
     Active Substance: IPRATROPIUM BROMIDE
  14. TERBUTALINE SULFATE. [Concomitant]
     Active Substance: TERBUTALINE SULFATE
  15. SERETIDE [Concomitant]
     Active Substance: FLUTICASONE PROPIONATE\SALMETEROL XINAFOATE
  16. ATORVASTATINE [Concomitant]
     Active Substance: ATORVASTATIN
  17. VALIUM ROCHE 5 MG, COMPRIME SECABLE [Concomitant]
  18. BEVITINE [Concomitant]
     Active Substance: THIAMINE
  19. NICOBION [Concomitant]
     Active Substance: NIACINAMIDE
  20. BECILAN 250 MG, COMPRIME SECABLE [Concomitant]
  21. CONTRAMAL [Concomitant]
     Active Substance: TRAMADOL HYDROCHLORIDE

REACTIONS (1)
  - Drug-induced liver injury [Recovering/Resolving]

NARRATIVE: CASE EVENT DATE: 201705
